FAERS Safety Report 6533357-6 (Version None)
Quarter: 2010Q1

REPORT INFORMATION
  Report Type: 
  Country: None (occurrence: None)
  Receive Date: 20100111
  Receipt Date: 20100105
  Transmission Date: 20100710
  Serious: Yes (Hospitalization)
  Sender: FDA-Public Use
  Company Number: B0624169A

PATIENT
  Age: 51 Year
  Sex: Male

DRUGS (1)
  1. ARIXTRA [Suspect]
     Indication: THROMBOSIS PROPHYLAXIS
     Dosage: 2.5MG PER DAY
     Route: 058
     Dates: start: 20091003, end: 20091006

REACTIONS (3)
  - ABDOMINAL PAIN [None]
  - ANASTOMOTIC HAEMORRHAGE [None]
  - MELAENA [None]
